FAERS Safety Report 8759901 (Version 1)
Quarter: 2012Q4

REPORT INFORMATION
  Report Type: 
  Country: AU (occurrence: US)
  Receive Date: 20120829
  Receipt Date: 20120829
  Transmission Date: 20130627
  Serious: Yes (Hospitalization)
  Sender: FDA-Public Use
  Company Number: US-WATSON-2012-14489

PATIENT
  Age: 19 Month
  Sex: Male
  Weight: 14 kg

DRUGS (1)
  1. LAMOTRIGINE (UNKNOWN) [Suspect]
     Indication: PRODUCT USED FOR UNKNOWN INDICATION
     Dosage: UNK
     Route: 048

REACTIONS (9)
  - Convulsion [Recovered/Resolved]
  - Accidental exposure to product [Not Recovered/Not Resolved]
  - Irritability [Recovered/Resolved]
  - Vomiting [Recovered/Resolved]
  - Sinus tachycardia [Recovered/Resolved]
  - Accidental overdose [Not Recovered/Not Resolved]
  - Crying [Recovered/Resolved]
  - White blood cell count increased [None]
  - Crying [None]
